FAERS Safety Report 14610137 (Version 1)
Quarter: 2018Q1

REPORT INFORMATION
  Report Type: Spontaneous
  Country: TR (occurrence: TR)
  Receive Date: 20180307
  Receipt Date: 20180307
  Transmission Date: 20180509
  Serious: Yes (Other)
  Sender: FDA-Public Use
  Company Number: TR-B.I. PHARMACEUTICALS,INC./RIDGEFIELD-2018-BI-011589

PATIENT
  Age: 46 Year
  Sex: Male
  Weight: 106 kg

DRUGS (1)
  1. SPIRIVA [Suspect]
     Active Substance: TIOTROPIUM BROMIDE MONOHYDRATE
     Indication: CHRONIC OBSTRUCTIVE PULMONARY DISEASE
     Route: 050

REACTIONS (7)
  - Eye pain [Recovered/Resolved]
  - Vision blurred [Recovered/Resolved]
  - Diplopia [Recovered/Resolved]
  - Dysphagia [Recovered/Resolved]
  - Vision blurred [Recovered/Resolved]
  - Rhinalgia [Recovered/Resolved]
  - Pruritus [Recovered/Resolved]

NARRATIVE: CASE EVENT DATE: 20171222
